FAERS Safety Report 8179069-7 (Version None)
Quarter: 2012Q1

REPORT INFORMATION
  Report Type: 
  Country: None (occurrence: None)
  Receive Date: 20120302
  Receipt Date: 20120220
  Transmission Date: 20120608
  Serious: Yes (Other)
  Sender: FDA-Public Use
  Company Number: ES-ROCHE-1044076

PATIENT
  Sex: Female

DRUGS (3)
  1. COPEGUS [Suspect]
     Indication: HEPATITIS C
     Route: 048
     Dates: start: 20110121, end: 20110121
  2. BI 201335 (HCV PROTEASE INHIBITOR) [Suspect]
     Indication: HEPATITIS C
     Route: 048
     Dates: start: 20110121, end: 20110121
  3. BI 207127 [Suspect]
     Indication: HEPATITIS C
     Route: 048
     Dates: start: 20110121, end: 20110121

REACTIONS (2)
  - FACE OEDEMA [None]
  - RASH [None]
